FAERS Safety Report 23154596 (Version 1)
Quarter: 2023Q4

REPORT INFORMATION
  Report Type: Spontaneous
  Country: CA (occurrence: CA)
  Receive Date: 20231107
  Receipt Date: 20231107
  Transmission Date: 20240110
  Serious: Yes (Life-Threatening, Other)
  Sender: FDA-Public Use
  Company Number: CA-BRISTOL-MYERS SQUIBB COMPANY-2023-159118

PATIENT
  Age: 80 Year
  Sex: Male

DRUGS (4)
  1. PACLITAXEL [Suspect]
     Active Substance: PACLITAXEL
     Indication: Non-small cell lung cancer
     Route: 042
  2. BENADRYL [Concomitant]
     Active Substance: DIPHENHYDRAMINE HYDROCHLORIDE
     Indication: Product used for unknown indication
  3. DEXAMETHASONE [Concomitant]
     Active Substance: DEXAMETHASONE
     Indication: Product used for unknown indication
  4. FAMOTIDINE [Concomitant]
     Active Substance: FAMOTIDINE
     Indication: Product used for unknown indication

REACTIONS (14)
  - Consciousness fluctuating [Unknown]
  - Flushing [Unknown]
  - Chest discomfort [Unknown]
  - Headache [Unknown]
  - Hyperhidrosis [Unknown]
  - Hypotension [Unknown]
  - Nausea [Unknown]
  - Oxygen saturation decreased [Unknown]
  - Pallor [Unknown]
  - Retching [Unknown]
  - Tachycardia [Unknown]
  - Vomiting [Unknown]
  - Back pain [Unknown]
  - Adverse event [Unknown]
